FAERS Safety Report 23833038 (Version 1)
Quarter: 2024Q2

REPORT INFORMATION
  Report Type: Report from Study
  Country: US (occurrence: US)
  Receive Date: 20240508
  Receipt Date: 20240508
  Transmission Date: 20240716
  Serious: Yes (Other)
  Sender: FDA-Public Use
  Company Number: US-ABBVIE-5747617

PATIENT
  Age: 48 Year
  Sex: Female

DRUGS (5)
  1. SKYRIZI [Suspect]
     Active Substance: RISANKIZUMAB-RZAA
     Indication: Crohn^s disease
     Dosage: THEN EVERY 8 WEEKS THERE AFTER?FORM STRENGTH: 360 MILLIGRAM
     Route: 058
     Dates: start: 20231013
  2. SKYRIZI [Suspect]
     Active Substance: RISANKIZUMAB-RZAA
     Dosage: AT WEEK 12 ?SKYRIZI 360MG/2.4ML ?FORM STRENGTH: 360 MILLIGRAM?FIRST AND LAST ADMIN DATE WAS 2023
     Route: 058
  3. SKYRIZI [Suspect]
     Active Substance: RISANKIZUMAB-RZAA
     Indication: Crohn^s disease
     Dosage: 600MG/10ML INTRAVENOUS INFUSION AT WEEK 0?EXACT DATE WAS UNKNOWN
     Route: 042
     Dates: start: 202303, end: 202303
  4. SKYRIZI [Suspect]
     Active Substance: RISANKIZUMAB-RZAA
     Indication: Crohn^s disease
     Dosage: FREQUENCY TEXT: WEEK 4?FIRST AND LAST ADMIN DATE WAS 2023
     Route: 042
  5. SKYRIZI [Suspect]
     Active Substance: RISANKIZUMAB-RZAA
     Indication: Crohn^s disease
     Dosage: FREQUENCY TEXT: WEEK 8
     Route: 042
     Dates: start: 20230523, end: 20230523

REACTIONS (6)
  - Sleeve gastrectomy [Unknown]
  - Decreased appetite [Unknown]
  - Diarrhoea [Unknown]
  - Weight decreased [Unknown]
  - Insomnia [Unknown]
  - General physical condition abnormal [Unknown]

NARRATIVE: CASE EVENT DATE: 20240301
